FAERS Safety Report 5035453-1 (Version None)
Quarter: 2006Q2

REPORT INFORMATION
  Report Type: 
  Country: None (occurrence: None)
  Receive Date: 20060526
  Receipt Date: 20060303
  Transmission Date: 20061013
  Serious: No
  Sender: FDA-Public Use
  Company Number: FABR-11432

PATIENT
  Age: 32 Year
  Sex: Male
  Weight: 83 kg

DRUGS (2)
  1. FABRAZYME [Suspect]
     Indication: FABRY'S DISEASE
     Dosage: 83 MG Q2WKS IV
     Route: 042
     Dates: start: 20030101
  2. TYLENOL (CAPLET) [Concomitant]

REACTIONS (2)
  - CELLULITIS [None]
  - LYMPHADENOPATHY [None]
